FAERS Safety Report 5363609-7 (Version None)
Quarter: 2007Q2

REPORT INFORMATION
  Report Type: 
  Country: None (occurrence: None)
  Receive Date: 20070620
  Receipt Date: 20070618
  Transmission Date: 20071010
  Serious: Yes (Other)
  Sender: FDA-Public Use
  Company Number: B0475493A

PATIENT
  Age: 81 Year
  Sex: Male
  Weight: 43 kg

DRUGS (7)
  1. VALTREX [Suspect]
     Indication: HERPES VIRUS INFECTION
     Dosage: 500MG PER DAY
     Route: 048
     Dates: start: 20070517, end: 20070519
  2. FUROSEMIDE [Concomitant]
     Route: 048
  3. TANKARU [Concomitant]
     Route: 048
  4. AMOBAN [Concomitant]
     Route: 048
  5. SHINLUCK [Concomitant]
     Route: 048
  6. ALOSENN [Concomitant]
     Route: 048
  7. NORVASC [Concomitant]
     Route: 048

REACTIONS (6)
  - ABNORMAL BEHAVIOUR [None]
  - COORDINATION ABNORMAL [None]
  - DYSARTHRIA [None]
  - GAIT DISTURBANCE [None]
  - LOGORRHOEA [None]
  - NERVOUS SYSTEM DISORDER [None]
